FAERS Safety Report 20407683 (Version 1)
Quarter: 2022Q1

REPORT INFORMATION
  Report Type: Spontaneous
  Country: CN (occurrence: CN)
  Receive Date: 20220131
  Receipt Date: 20220131
  Transmission Date: 20220423
  Serious: Yes (Other)
  Sender: FDA-Public Use
  Company Number: CN-BAXTER-2022BAX001886

PATIENT
  Age: 49 Year
  Sex: Female
  Weight: 55 kg

DRUGS (8)
  1. CYCLOPHOSPHAMIDE [Suspect]
     Active Substance: CYCLOPHOSPHAMIDE
     Indication: Breast cancer female
     Dosage: CYCLOPHOSPHAMIDE FOR INJECTION + 100ML 0.9% SODIUM CHLORIDE INJECTION
     Route: 041
     Dates: start: 20220101, end: 20220101
  2. CYCLOPHOSPHAMIDE [Suspect]
     Active Substance: CYCLOPHOSPHAMIDE
     Indication: Hormone receptor positive breast cancer
  3. CYCLOPHOSPHAMIDE [Suspect]
     Active Substance: CYCLOPHOSPHAMIDE
     Indication: Breast cancer stage II
  4. SODIUM CHLORIDE [Suspect]
     Active Substance: SODIUM CHLORIDE
     Indication: Medication dilution
     Dosage: CYCLOPHOSPHAMIDE FOR INJECTION 0.88 G + 100ML 0.9% SODIUM CHLORIDE INJECTION
     Route: 041
     Dates: start: 20220101, end: 20220101
  5. SODIUM CHLORIDE [Suspect]
     Active Substance: SODIUM CHLORIDE
     Dosage: DOCETAXEL  INJECTION 110 MG  + 0.9% SODIUM CHLORIDE INJECTION 250 ML
     Route: 041
     Dates: start: 20220101, end: 20220101
  6. DOCETAXEL [Suspect]
     Active Substance: DOCETAXEL
     Indication: Breast cancer female
     Dosage: DOCETAXEL  INJECTION 110 MG + 250ML 0.9% SODIUM CHLORIDE INJECTION
     Route: 041
     Dates: start: 20220101, end: 20220101
  7. DOCETAXEL [Suspect]
     Active Substance: DOCETAXEL
     Indication: Hormone receptor positive breast cancer
  8. DOCETAXEL [Suspect]
     Active Substance: DOCETAXEL
     Indication: Breast cancer stage II

REACTIONS (2)
  - White blood cell count decreased [Unknown]
  - Neutrophil count decreased [Unknown]

NARRATIVE: CASE EVENT DATE: 20220122
